FAERS Safety Report 20205822 (Version 1)
Quarter: 2021Q4

REPORT INFORMATION
  Report Type: Spontaneous
  Country: SI (occurrence: None)
  Receive Date: 20211220
  Receipt Date: 20211220
  Transmission Date: 20220303
  Serious: Yes (Other)
  Sender: FDA-Public Use
  Company Number: SI-ROCHE-2977478

PATIENT
  Age: 60 Year
  Sex: Female

DRUGS (2)
  1. CAPECITABINE [Suspect]
     Active Substance: CAPECITABINE
     Indication: Product used for unknown indication
     Route: 065
  2. CETUXIMAB [Suspect]
     Active Substance: CETUXIMAB
     Indication: Product used for unknown indication
     Route: 065

REACTIONS (8)
  - Gastroenteritis [Unknown]
  - Dermatitis acneiform [Unknown]
  - Paraesthesia [Unknown]
  - Fatigue [Unknown]
  - Ovarian mass [Unknown]
  - Left ventricular dysfunction [Unknown]
  - Pulmonary oedema [Unknown]
  - Cardiac disorder [Unknown]
